FAERS Safety Report 24704753 (Version 1)
Quarter: 2024Q4

REPORT INFORMATION
  Report Type: Spontaneous
  Country: US (occurrence: US)
  Receive Date: 20241206
  Receipt Date: 20241206
  Transmission Date: 20250115
  Serious: No
  Sender: PADAGIS
  Company Number: US-PADAGIS-2024PAD01892

PATIENT

DRUGS (1)
  1. HYDROCORTISONE ACETATE [Suspect]
     Active Substance: HYDROCORTISONE ACETATE
     Indication: Haemorrhoids
     Dosage: ONCE ON FRIDAY NIGHT AROUND 9 PM
     Route: 054

REACTIONS (10)
  - Muscle twitching [Unknown]
  - Tremor [Unknown]
  - Illness [Unknown]
  - Faeces discoloured [Unknown]
  - Chills [Unknown]
  - Burning sensation [Unknown]
  - Flushing [Unknown]
  - Body temperature abnormal [Unknown]
  - Tremor [Unknown]
  - Thermal burn [Unknown]
